FAERS Safety Report 6057427-4 (Version None)
Quarter: 2009Q1

REPORT INFORMATION
  Report Type: 
  Country: None (occurrence: None)
  Receive Date: 20090126
  Receipt Date: 20090126
  Transmission Date: 20090719
  Serious: Yes (Life-Threatening)
  Sender: FDA-Public Use
  Company Number: None

PATIENT
  Sex: Male
  Weight: 88.4514 kg

DRUGS (1)
  1. SALICYLIC ACID 6% CREAM PERRIGO - YERUHAM, ISRAEL 80500- [Suspect]
     Indication: PSORIASIS
     Dosage: APPLY TO THE AFFECTED AREA ONCE A BEDTIME TOP
     Route: 061
     Dates: start: 20080920, end: 20081010

REACTIONS (3)
  - HYPERTENSION [None]
  - NOCTURNAL DYSPNOEA [None]
  - VENTRICULAR EXTRASYSTOLES [None]
